FAERS Safety Report 8710770 (Version 2)
Quarter: 2012Q4

REPORT INFORMATION
  Report Type: 
  Country: JP (occurrence: JP)
  Receive Date: 20120807
  Receipt Date: 20120829
  Transmission Date: 20130627
  Serious: No
  Sender: FDA-Public Use
  Company Number: PHHY2012JP067494

PATIENT
  Age: 90 Year
  Sex: Female

DRUGS (5)
  1. RIVASTIGMINE [Suspect]
     Indication: DEMENTIA ALZHEIMER^S TYPE
     Dosage: 4.5 mg, once a day
     Route: 062
     Dates: start: 20120711, end: 20120720
  2. AMLODIPINE BESYLATE [Concomitant]
  3. RENIVACE [Concomitant]
  4. TAKEPRON [Concomitant]
  5. MOHRUS TAPE [Concomitant]

REACTIONS (2)
  - Syncope [Unknown]
  - Eye movement disorder [Unknown]
